FAERS Safety Report 4304616-2 (Version None)
Quarter: 2004Q1

REPORT INFORMATION
  Report Type: 
  Country: None (occurrence: None)
  Receive Date: 20040226
  Receipt Date: 20031021
  Transmission Date: 20041129
  Serious: Yes (Other)
  Sender: FDA-Public Use
  Company Number: US-GLAXOSMITHKLINE-A0431217A

PATIENT
  Age: 20 Year
  Sex: Male

DRUGS (3)
  1. WELLBUTRIN [Suspect]
     Indication: ATTENTION DEFICIT/HYPERACTIVITY DISORDER
     Route: 048
     Dates: start: 20031018, end: 20031021
  2. ZOLOFT [Concomitant]
     Indication: DEPRESSION
  3. ALCOHOL [Concomitant]

REACTIONS (1)
  - GRAND MAL CONVULSION [None]
